FAERS Safety Report 17659659 (Version 1)
Quarter: 2020Q2

REPORT INFORMATION
  Report Type: Spontaneous
  Country: FI (occurrence: FI)
  Receive Date: 20200413
  Receipt Date: 20200413
  Transmission Date: 20200713
  Serious: Yes (Death)
  Sender: FDA-Public Use
  Company Number: FI-BION-008640

PATIENT
  Sex: Male

DRUGS (2)
  1. ALPHA-PYRROLIDINOVALEROPHENONE (APVP) [Suspect]
     Active Substance: .ALPHA.-PYRROLIDINOPENTIOPHENONE
     Indication: PRODUCT USED FOR UNKNOWN INDICATION
  2. AMPHETAMINE SULFATE UNKNOWN PRODUCT [Suspect]
     Active Substance: AMPHETAMINE SULFATE
     Indication: PRODUCT USED FOR UNKNOWN INDICATION

REACTIONS (1)
  - Toxicity to various agents [Fatal]
